FAERS Safety Report 25411818 (Version 2)
Quarter: 2025Q4

REPORT INFORMATION
  Report Type: Spontaneous
  Country: US (occurrence: US)
  Receive Date: 20250609
  Receipt Date: 20251224
  Transmission Date: 20260118
  Serious: No
  Sender: ITALFARMACO SPA
  Company Number: US-ITALFARMACO SPA-2178324

PATIENT
  Age: 11 Year
  Sex: Male
  Weight: 37.8 kg

DRUGS (5)
  1. DUVYZAT [Suspect]
     Active Substance: GIVINOSTAT
     Indication: Duchenne muscular dystrophy
     Route: 061
     Dates: start: 20250107
  2. PREDNISONE [Concomitant]
     Active Substance: PREDNISONE
  3. VITAMIN D3 [Concomitant]
     Active Substance: CHOLECALCIFEROL
  4. SPIRONOLACTONE [Concomitant]
     Active Substance: SPIRONOLACTONE
  5. ENALAPRIL MALEATE [Concomitant]
     Active Substance: ENALAPRIL MALEATE

REACTIONS (4)
  - Diarrhoea [Unknown]
  - Lipids increased [Unknown]
  - Platelet count decreased [Unknown]
  - Abdominal pain upper [Unknown]
